FAERS Safety Report 4486949-2 (Version None)
Quarter: 2004Q3

REPORT INFORMATION
  Report Type: 
  Country: None (occurrence: None)
  Receive Date: 20040921
  Receipt Date: 20031024
  Transmission Date: 20050211
  Serious: Yes (Hospitalization)
  Sender: FDA-Public Use
  Company Number: 163-20785-03100626

PATIENT
  Age: 73 Year
  Sex: Male

DRUGS (1)
  1. THALOMID [Suspect]
     Indication: MYELODYSPLASTIC SYNDROME
     Dosage: 200 MG, DAILY, ORAL
     Route: 048
     Dates: start: 20030826, end: 20031001

REACTIONS (3)
  - ANAEMIA [None]
  - HYPERSENSITIVITY [None]
  - RASH ERYTHEMATOUS [None]
